FAERS Safety Report 5017250-6 (Version None)
Quarter: 2006Q2

REPORT INFORMATION
  Report Type: 
  Country: None (occurrence: None)
  Receive Date: 20060414
  Receipt Date: 20060303
  Transmission Date: 20061013
  Serious: No
  Sender: FDA-Public Use
  Company Number: 2006SP001053

PATIENT
  Age: 82 Year
  Sex: Female
  Weight: 92.5338 kg

DRUGS (13)
  1. LUNESTA [Suspect]
     Indication: INSOMNIA
     Dosage: 2 MG;HS;ORAL
     Route: 048
     Dates: start: 20060301
  2. RESTORIL [Concomitant]
  3. BENICAR [Concomitant]
  4. TOPROL-XL [Concomitant]
  5. NEXIUM [Concomitant]
  6. ATORVASTATIN CALCIUM [Concomitant]
  7. LASIX [Concomitant]
  8. POTASSIUM [Concomitant]
  9. LEVOXYL [Concomitant]
  10. PROPAFENONE HCL [Concomitant]
  11. ASPIRIN [Concomitant]
  12. ENABLEX [Concomitant]
  13. HUMALIN [Concomitant]

REACTIONS (2)
  - DRUG INEFFECTIVE [None]
  - INSOMNIA [None]
